FAERS Safety Report 11464628 (Version 2)
Quarter: 2015Q4

REPORT INFORMATION
  Report Type: Report from Study
  Country: US (occurrence: US)
  Receive Date: 20150906
  Receipt Date: 20151014
  Transmission Date: 20160304
  Serious: No
  Sender: FDA-Public Use
  Company Number: PHEH2015US016006

PATIENT
  Age: 4 Year
  Sex: Male
  Weight: 42.63 kg

DRUGS (1)
  1. ILARIS [Suspect]
     Active Substance: CANAKINUMAB
     Indication: IMMUNE SYSTEM DISORDER
     Dosage: 45 MG, EVERY 8 WEEKS
     Route: 058
     Dates: start: 20150420

REACTIONS (3)
  - Pyrexia [Recovering/Resolving]
  - Product use issue [Not Recovered/Not Resolved]
  - Condition aggravated [Recovering/Resolving]

NARRATIVE: CASE EVENT DATE: 20150814
